FAERS Safety Report 22271653 (Version 4)
Quarter: 2023Q2

REPORT INFORMATION
  Report Type: Spontaneous
  Country: GB (occurrence: GB)
  Receive Date: 20230502
  Receipt Date: 20230626
  Transmission Date: 20230721
  Serious: Yes (Death)
  Sender: FDA-Public Use
  Company Number: GB-AMGEN-GBRNI2023071910

PATIENT
  Age: 70 Year
  Sex: Female

DRUGS (26)
  1. TRASTUZUMAB [Suspect]
     Active Substance: TRASTUZUMAB
     Indication: Breast cancer
     Dosage: UNK, Q3WK, NUMBER OF CYCLES PER REGIMEN 1
     Route: 041
     Dates: start: 20151008, end: 20151008
  2. TRASTUZUMAB [Suspect]
     Active Substance: TRASTUZUMAB
     Dosage: UNK, Q3WK
     Route: 041
     Dates: end: 20170922
  3. TRASTUZUMAB [Suspect]
     Active Substance: TRASTUZUMAB
     Dosage: UNK, Q3WK
     Route: 041
     Dates: start: 20151029, end: 20170413
  4. TRASTUZUMAB [Suspect]
     Active Substance: TRASTUZUMAB
     Dosage: UNK, Q3WK
     Route: 041
     Dates: start: 20171012, end: 20180801
  5. DOCETAXEL [Suspect]
     Active Substance: DOCETAXEL
     Indication: Breast cancer
     Dosage: UNK, Q3WK2, NUMBER OF CYCLES PER REGIMEN 6
     Route: 042
     Dates: start: 20151009, end: 20151210
  6. DOCETAXEL [Suspect]
     Active Substance: DOCETAXEL
     Dosage: UNK, Q3WK
     Route: 042
     Dates: start: 20160111, end: 20160209
  7. PERTUZUMAB [Suspect]
     Active Substance: PERTUZUMAB
     Indication: Breast cancer
     Dosage: UNK, QD
     Route: 042
     Dates: start: 20151008, end: 20151008
  8. PERTUZUMAB [Suspect]
     Active Substance: PERTUZUMAB
     Dosage: UNK, Q3WK
     Route: 042
     Dates: start: 20151029, end: 20170413
  9. PERTUZUMAB [Suspect]
     Active Substance: PERTUZUMAB
     Dosage: UNK, Q3WK
     Route: 042
     Dates: start: 20170921, end: 20180329
  10. BUTYLSCOPOLAMINE BROMIDE [Concomitant]
     Active Substance: BUTYLSCOPOLAMINE BROMIDE
     Dosage: 10 MILLIGRAM
     Route: 048
  11. DEXAMETHASONE [Concomitant]
     Active Substance: DEXAMETHASONE
     Indication: Headache
     Dosage: UNK
  12. DEXAMETHASONE [Concomitant]
     Active Substance: DEXAMETHASONE
  13. DOXAZOSIN [Concomitant]
     Active Substance: DOXAZOSIN MESYLATE
     Dosage: 2 MILLIGRAM, BID
     Route: 048
  14. ESOMEPRAZOLE [Concomitant]
     Active Substance: ESOMEPRAZOLE
     Dosage: 20 MILLILITER, QD
     Route: 048
     Dates: start: 20200101
  15. FUROSEMIDE [Concomitant]
     Active Substance: FUROSEMIDE
     Dosage: 20 MILLIGRAM, QD
     Route: 048
     Dates: start: 20200101
  16. HYDROCHLOROTHIAZIDE [Concomitant]
     Active Substance: HYDROCHLOROTHIAZIDE
     Dosage: UNK, QD
     Route: 048
  17. HYDROCHLOROTHIAZIDE [Concomitant]
     Active Substance: HYDROCHLOROTHIAZIDE
  18. HYDROCHLOROTHIAZIDE [Concomitant]
     Active Substance: HYDROCHLOROTHIAZIDE
  19. METOPROLOL [Concomitant]
     Active Substance: METOPROLOL
     Dosage: 25 MILLIGRAM, QD
     Route: 048
     Dates: start: 20170522, end: 20170522
  20. ONDANSETRON [Concomitant]
     Active Substance: ONDANSETRON
     Indication: Nausea
     Dosage: 2 MILLIGRAM
     Route: 048
  21. ONDANSETRON [Concomitant]
     Active Substance: ONDANSETRON
  22. PERINDOPRIL [Concomitant]
     Active Substance: PERINDOPRIL
     Dosage: 4 MILLIGRAM, QD
     Route: 048
     Dates: start: 20161123
  23. PROCHLORPERAZINE [Concomitant]
     Active Substance: PROCHLORPERAZINE
     Indication: Nausea
     Dosage: UNK
  24. SYMBICORT [Concomitant]
     Active Substance: BUDESONIDE\FORMOTEROL FUMARATE DIHYDRATE
     Dosage: 100.00 PUFF, BID
     Route: 065
  25. TELMISARTAN [Concomitant]
     Active Substance: TELMISARTAN
     Dosage: UNK, QD
     Route: 048
  26. TELMISARTAN [Concomitant]
     Active Substance: TELMISARTAN

REACTIONS (2)
  - Metastatic neoplasm [Fatal]
  - Off label use [Unknown]

NARRATIVE: CASE EVENT DATE: 20200101
